FAERS Safety Report 18704424 (Version 1)
Quarter: 2021Q1

REPORT INFORMATION
  Report Type: Spontaneous
  Country: FR (occurrence: FR)
  Receive Date: 20210106
  Receipt Date: 20210106
  Transmission Date: 20210419
  Serious: Yes (Death)
  Sender: FDA-Public Use
  Company Number: FR-TEVA-2020-FR-1864399

PATIENT
  Age: 63 Year
  Sex: Female
  Weight: 55 kg

DRUGS (8)
  1. BECILAN 250 MG, COMPRIME SECABLE [Concomitant]
     Active Substance: PYRIDOXINE
     Dosage: 2DF
     Route: 048
     Dates: start: 20201006, end: 20201027
  2. SOMATOSTATINE [Concomitant]
     Active Substance: SOMATOSTATIN
     Route: 042
     Dates: start: 20200923, end: 20200927
  3. CALCIDOSE [Concomitant]
     Dosage: 2DF
     Route: 048
     Dates: start: 20201007, end: 20201027
  4. BEVITINE 250 MG, COMPRIME ENROBE [Concomitant]
     Active Substance: THIAMINE HYDROCHLORIDE
     Dosage: 2DF
     Route: 048
     Dates: start: 20201006, end: 20201027
  5. PANTOPRAZOLE [Suspect]
     Active Substance: PANTOPRAZOLE
     Indication: OESOPHAGEAL VARICES HAEMORRHAGE
     Dosage: 80MG
     Route: 048
     Dates: start: 20200929, end: 20201027
  6. ERYTHROMYCINE [Concomitant]
     Active Substance: ERYTHROMYCIN
     Dosage: 250MG
     Route: 042
     Dates: start: 20201002
  7. PROPRANOLOL [Suspect]
     Active Substance: PROPRANOLOL HYDROCHLORIDE
     Indication: OESOPHAGEAL VARICES HAEMORRHAGE
     Dosage: 160MG
     Route: 048
     Dates: start: 20200927, end: 20201027
  8. SOLUPRED 20 MG, COMPRIME ORODISPERSIBLE [Concomitant]
     Active Substance: PREDNISOLONE SODIUM METAZOATE
     Dosage: 2DF
     Route: 048
     Dates: start: 20200930, end: 20201027

REACTIONS (1)
  - SJS-TEN overlap [Fatal]

NARRATIVE: CASE EVENT DATE: 20201024
